FAERS Safety Report 6186528-5 (Version None)
Quarter: 2009Q2

REPORT INFORMATION
  Report Type: 
  Country: None (occurrence: None)
  Receive Date: 20090507
  Receipt Date: 20090507
  Transmission Date: 20091009
  Serious: Yes (Other)
  Sender: FDA-Public Use
  Company Number: None

PATIENT
  Age: 59 Year
  Sex: Female
  Weight: 63.5036 kg

DRUGS (1)
  1. SEROQUEL [Suspect]
     Indication: BIPOLAR DISORDER
     Dosage: 5 TABLETS ONCE, AT BEDTIME, DAILY
     Dates: start: 20090423, end: 20090504

REACTIONS (5)
  - DIARRHOEA [None]
  - DIZZINESS POSTURAL [None]
  - FEELING ABNORMAL [None]
  - SKIN ULCER [None]
  - SLEEP TERROR [None]
